FAERS Safety Report 6379822-6 (Version None)
Quarter: 2009Q3

REPORT INFORMATION
  Report Type: 
  Country: None (occurrence: None)
  Receive Date: 20090924
  Receipt Date: 20090610
  Transmission Date: 20100115
  Serious: Yes (Other)
  Sender: FDA-Public Use
  Company Number: US-CVT-090356

PATIENT
  Age: 66 Year
  Sex: Male
  Weight: 94.3 kg

DRUGS (12)
  1. RANEXA [Suspect]
     Indication: ANGINA PECTORIS
     Dosage: 500 MG, BID, ORAL
     Route: 048
     Dates: start: 20080506, end: 20081023
  2. SYNTHROID [Concomitant]
  3. PREVACID [Concomitant]
  4. ACEON [Concomitant]
  5. AMIODARONE HCL [Concomitant]
  6. COREG [Concomitant]
  7. SIMVASTATIN [Concomitant]
  8. WARFARIN [Concomitant]
  9. ZYRTEC [Concomitant]
  10. NITROGLYCERIN [Concomitant]
  11. ASPIRIN [Concomitant]
  12. MULTI-VITAMINS [Concomitant]

REACTIONS (1)
  - LEUKOCYTOCLASTIC VASCULITIS [None]
